FAERS Safety Report 5237155-5 (Version None)
Quarter: 2007Q1

REPORT INFORMATION
  Report Type: 
  Country: None (occurrence: None)
  Receive Date: 20070213
  Receipt Date: 20070213
  Transmission Date: 20070707
  Serious: Yes (Hospitalization)
  Sender: FDA-Public Use
  Company Number: JP-GLAXOSMITHKLINE-B0457751A

PATIENT
  Sex: Female

DRUGS (5)
  1. PAXIL [Suspect]
     Indication: DEPRESSION
     Dosage: 10MG PER DAY
     Route: 048
     Dates: start: 20010926, end: 20011226
  2. EVAMYL [Concomitant]
     Indication: INSOMNIA
     Route: 048
     Dates: start: 20010926, end: 20011226
  3. DEPAS [Concomitant]
     Indication: INSOMNIA
     Route: 048
     Dates: start: 20010926, end: 20011226
  4. PURSENNID [Concomitant]
     Indication: CONSTIPATION
     Route: 048
     Dates: start: 20010926, end: 20011226
  5. LORAZEPAM [Concomitant]
     Indication: ANXIETY
     Route: 048
     Dates: start: 20010926, end: 20011226

REACTIONS (1)
  - CEREBRAL INFARCTION [None]
